FAERS Safety Report 4978455-3 (Version None)
Quarter: 2006Q1

REPORT INFORMATION
  Report Type: 
  Country: None (occurrence: None)
  Receive Date: 20060227
  Receipt Date: 20050829
  Transmission Date: 20060701
  Serious: Yes (Life-Threatening, Hospitalization, Disabling)
  Sender: FDA-Public Use
  Company Number: WAES 0508USA04564

PATIENT
  Age: 51 Year
  Sex: Male

DRUGS (3)
  1. ZOCOR [Suspect]
     Indication: BLOOD CHOLESTEROL INCREASED
     Dosage: 20 MG/DAILY/PO
     Route: 048
     Dates: start: 20050606, end: 20050725
  2. ZOCOR [Suspect]
     Indication: HYPERLIPIDAEMIA
     Dosage: 20 MG/DAILY/PO
     Route: 048
     Dates: start: 20050606, end: 20050725
  3. VICODIN [Concomitant]

REACTIONS (1)
  - HEPATITIS ACUTE [None]
